FAERS Safety Report 8894461 (Version 1)
Quarter: 2012Q4

REPORT INFORMATION
  Report Type: 
  Country: US (occurrence: US)
  Receive Date: 20121107
  Receipt Date: 20121107
  Transmission Date: 20130627
  Serious: No
  Sender: FDA-Public Use
  Company Number: US-AMGEN-USASP2011059660

PATIENT
  Age: 60 Year
  Sex: Male

DRUGS (3)
  1. ENBREL [Suspect]
     Indication: RHEUMATOID ARTHRITIS
     Dosage: 50 mg, qwk
     Dates: start: 20050601, end: 201012
  2. HUMIRA [Concomitant]
  3. SIMPONI [Concomitant]

REACTIONS (3)
  - Arthritis [Unknown]
  - Joint swelling [Unknown]
  - Laboratory test abnormal [Not Recovered/Not Resolved]
